FAERS Safety Report 8870823 (Version 1)
Quarter: 2012Q4

REPORT INFORMATION
  Report Type: Spontaneous
  Country: US (occurrence: None)
  Receive Date: 20121026
  Receipt Date: 20121026
  Transmission Date: 20130627
  Serious: Yes (Death, Hospitalization)
  Sender: FDA-Public Use
  Company Number: None

PATIENT
  Age: 19 Year
  Sex: Female

DRUGS (1)
  1. CELEXA [Suspect]
     Indication: INTENTIONAL OVERDOSE

REACTIONS (3)
  - Serotonin syndrome [None]
  - Incorrect dose administered [None]
  - Neuroleptic malignant syndrome [None]
